FAERS Safety Report 24826848 (Version 1)
Quarter: 2025Q1

REPORT INFORMATION
  Report Type: Spontaneous
  Country: US (occurrence: US)
  Receive Date: 20250109
  Receipt Date: 20250109
  Transmission Date: 20250409
  Serious: No
  Sender: BRISTOL-MYERS SQUIBB COMPANY
  Company Number: US-BRISTOL-MYERS SQUIBB COMPANY-2025-003082

PATIENT
  Age: 48 Year
  Sex: Female

DRUGS (1)
  1. SOTYKTU [Suspect]
     Active Substance: DEUCRAVACITINIB
     Indication: Product used for unknown indication
     Route: 048
     Dates: end: 202404

REACTIONS (2)
  - Psoriasis [Unknown]
  - Arthritis [Unknown]

NARRATIVE: CASE EVENT DATE: 20240424
